FAERS Safety Report 7659951-7 (Version None)
Quarter: 2011Q3

REPORT INFORMATION
  Report Type: 
  Country: None (occurrence: None)
  Receive Date: 20110805
  Receipt Date: 20110802
  Transmission Date: 20111222
  Serious: No
  Sender: FDA-Public Use
  Company Number: US-BAYER-201012957NA

PATIENT
  Age: 80 Year
  Sex: Female
  Weight: 59.41 kg

DRUGS (1)
  1. AVELOX [Suspect]
     Indication: SINUSITIS
     Dosage: DAILY DOSE 1 DF
     Route: 048
     Dates: start: 20100106, end: 20100109

REACTIONS (3)
  - PALPITATIONS [None]
  - PAIN IN EXTREMITY [None]
  - NERVOUSNESS [None]
